FAERS Safety Report 8773277 (Version 13)
Quarter: 2014Q2

REPORT INFORMATION
  Report Type: Report from Study
  Country: US (occurrence: US)
  Receive Date: 20120907
  Receipt Date: 20140611
  Transmission Date: 20141212
  Serious: Yes (Hospitalization, Other)
  Sender: FDA-Public Use
  Company Number: US-ROCHE-1114372

PATIENT
  Age: 67 Year
  Sex: Female

DRUGS (22)
  1. VEMURAFENIB [Suspect]
     Indication: PAPILLARY THYROID CANCER
     Dosage: RECENT DOSE PRIOR TO EVENT WAS TAKEN ON 03/NOV/2012
     Route: 048
     Dates: start: 20120628, end: 20120724
  2. VEMURAFENIB [Suspect]
     Route: 048
     Dates: start: 20120731, end: 20120828
  3. VEMURAFENIB [Suspect]
     Route: 048
     Dates: start: 20120828, end: 20120913
  4. VEMURAFENIB [Suspect]
     Dosage: RECENT DOSE PRIOR TO EVENT WAS TAKEN ON 03/NOV/2012, THE PATIENT WAS DISCONTINUED FROM STUDY ON 20/N
     Route: 048
     Dates: start: 20120913
  5. DECADRON [Concomitant]
     Indication: DYSPHAGIA
     Route: 042
     Dates: start: 20120724
  6. LEVOTHYROXINE [Concomitant]
     Route: 048
     Dates: start: 20071206, end: 20120830
  7. LEVOTHYROXINE [Concomitant]
     Route: 065
     Dates: start: 20120831
  8. METOCLOPRAMIDE [Concomitant]
     Route: 048
     Dates: start: 20120628
  9. AUGMENTIN [Concomitant]
     Indication: DYSPHAGIA
     Route: 048
     Dates: start: 20120628, end: 20120705
  10. AUGMENTIN [Concomitant]
     Route: 048
     Dates: start: 20120727, end: 20120805
  11. GUAIFENESIN SYRUP [Concomitant]
     Route: 048
     Dates: start: 20111206
  12. UREA CREAM [Concomitant]
     Dosage: 1 APPLICATION.
     Route: 061
     Dates: start: 20120719
  13. BACITRACIN/POLYMYXIN [Concomitant]
     Indication: PARONYCHIA
     Route: 065
     Dates: start: 20120712
  14. OXYCODONE [Concomitant]
     Indication: COUGH
     Route: 065
     Dates: start: 20120716
  15. NYSTATIN [Concomitant]
     Indication: OROPHARYNGEAL PAIN
     Route: 065
     Dates: start: 20120823
  16. DIPHENHYDRAMINE HYDROCHLORIDE/LIDOCAINE HYDROCHLORIDE [Concomitant]
     Indication: OROPHARYNGEAL PAIN
     Dosage: 10 TO 15 ML
     Route: 065
     Dates: start: 20120823
  17. CLOBETASOL [Concomitant]
     Dosage: 1 APPLICATION
     Route: 065
     Dates: start: 20120816, end: 20120830
  18. PREDNISONE [Concomitant]
     Indication: DYSPNOEA
     Route: 065
     Dates: start: 20120901, end: 20120905
  19. PREDNISONE [Concomitant]
     Route: 065
     Dates: start: 20120906, end: 20120910
  20. PREDNISONE [Concomitant]
     Route: 065
     Dates: start: 20120911
  21. LOPERAMIDE [Concomitant]
     Indication: DIARRHOEA
     Route: 065
     Dates: start: 20121001, end: 20121016
  22. ALCLOMETASONE DIPROPIONATE [Concomitant]
     Indication: RASH MACULO-PAPULAR
     Route: 065
     Dates: start: 20120712

REACTIONS (4)
  - Dyspnoea [Recovered/Resolved with Sequelae]
  - Pleuritic pain [Recovered/Resolved with Sequelae]
  - Dysphonia [Recovered/Resolved with Sequelae]
  - Laryngeal oedema [Recovered/Resolved with Sequelae]
